FAERS Safety Report 5449140-9 (Version None)
Quarter: 2007Q3

REPORT INFORMATION
  Report Type: 
  Country: None (occurrence: None)
  Receive Date: 20070911
  Receipt Date: 20070910
  Transmission Date: 20080115
  Serious: Yes (Death)
  Sender: FDA-Public Use
  Company Number: US-ROXANE LABORATORIES, INC-2007-DE-05318GD

PATIENT
  Age: 3 Month
  Sex: Female

DRUGS (4)
  1. DEXTROMETHORPHAN HYDROBROMIDE [Suspect]
     Indication: COUGH
  2. PSEUDOEPHEDRINE HCL [Suspect]
     Indication: COUGH
  3. PHENYTOIN [Suspect]
  4. VIAXIN [Concomitant]
     Indication: COUGH

REACTIONS (3)
  - DRUG TOXICITY [None]
  - HEPATIC STEATOSIS [None]
  - PNEUMONIA [None]
